FAERS Safety Report 8232860-0 (Version None)
Quarter: 2012Q1

REPORT INFORMATION
  Report Type: 
  Country: None (occurrence: None)
  Receive Date: 20120324
  Receipt Date: 20120316
  Transmission Date: 20120608
  Serious: Yes (Hospitalization)
  Sender: FDA-Public Use
  Company Number: BR-ASTRAZENECA-2012SE18831

PATIENT
  Age: 68 Year
  Sex: Female
  Weight: 42 kg

DRUGS (4)
  1. ATENOLOL [Suspect]
     Route: 048
     Dates: start: 20080101, end: 20111201
  2. AMLODIPINE BESYLATE [Concomitant]
     Indication: HYPERTENSION
     Dosage: TWO TIMES A DAY
     Route: 048
     Dates: start: 20070101
  3. CRESTOR [Suspect]
     Indication: BLOOD CHOLESTEROL INCREASED
     Route: 048
     Dates: start: 20110701, end: 20120101
  4. CRESTOR [Suspect]
     Route: 048

REACTIONS (4)
  - CHOLECYSTITIS [None]
  - BLOOD CHOLESTEROL INCREASED [None]
  - BLOOD PRESSURE INCREASED [None]
  - DRUG INEFFECTIVE [None]
